FAERS Safety Report 15020204 (Version 3)
Quarter: 2018Q3

REPORT INFORMATION
  Report Type: Report from Study
  Country: None (occurrence: US)
  Receive Date: 20180618
  Receipt Date: 20180823
  Transmission Date: 20181010
  Serious: Yes (Hospitalization)
  Sender: FDA-Public Use
  Company Number: US-ABBVIE-18K-163-2336067-00

PATIENT
  Sex: Male

DRUGS (1)
  1. HUMIRA [Suspect]
     Active Substance: ADALIMUMAB
     Indication: JUVENILE IDIOPATHIC ARTHRITIS
     Route: 058
     Dates: start: 201804

REACTIONS (29)
  - Hypoacusis [Recovered/Resolved]
  - Body temperature abnormal [Unknown]
  - Malaise [Unknown]
  - Pyrexia [Recovered/Resolved]
  - Crying [Recovering/Resolving]
  - Gait disturbance [Recovered/Resolved]
  - Loss of personal independence in daily activities [Not Recovered/Not Resolved]
  - Hyperhidrosis [Not Recovered/Not Resolved]
  - Insomnia [Unknown]
  - Arthralgia [Recovering/Resolving]
  - Injection site papule [Recovering/Resolving]
  - Bacterial infection [Unknown]
  - Decreased appetite [Recovering/Resolving]
  - Rhinorrhoea [Unknown]
  - Injection site erythema [Recovered/Resolved]
  - Injection site swelling [Recovered/Resolved]
  - Vomiting [Recovered/Resolved]
  - Gait disturbance [Not Recovered/Not Resolved]
  - Underweight [Not Recovered/Not Resolved]
  - Injection site erythema [Not Recovered/Not Resolved]
  - Pain [Recovering/Resolving]
  - Injection site discomfort [Unknown]
  - Weight gain poor [Recovered/Resolved]
  - Asthenia [Recovering/Resolving]
  - Dependent personality disorder [Unknown]
  - Gastric ulcer [Recovering/Resolving]
  - Mood altered [Not Recovered/Not Resolved]
  - Night sweats [Recovered/Resolved]
  - Ear infection [Recovered/Resolved]

NARRATIVE: CASE EVENT DATE: 2018
